FAERS Safety Report 9266632 (Version 1)
Quarter: 2013Q2

REPORT INFORMATION
  Report Type: Spontaneous
  Country: US (occurrence: US)
  Receive Date: 20130502
  Receipt Date: 20130502
  Transmission Date: 20140414
  Serious: Yes (Hospitalization)
  Sender: FDA-Public Use
  Company Number: US-BAYER-2013-051502

PATIENT
  Age: 27 Year
  Sex: Female

DRUGS (15)
  1. YAZ [Suspect]
  2. AUGMENTIN [Concomitant]
     Dosage: UNK
     Dates: start: 20080116
  3. ENTEX PSE [Concomitant]
     Dosage: UNK
     Dates: start: 20080116
  4. ALBUTEROL [Concomitant]
     Dosage: UNK
     Dates: start: 20080116
  5. PREDNISONE [Concomitant]
     Dosage: UNK
     Dates: start: 20080124
  6. ZYRTEC [Concomitant]
     Dosage: UNK
     Dates: start: 20080124
  7. FLONASE [Concomitant]
     Dosage: UNK
     Dates: start: 20080124
  8. BENADRYL [Concomitant]
     Dosage: UNK
     Dates: start: 20080124
  9. CEFTIN [Concomitant]
     Dosage: UNK
     Dates: start: 20080131
  10. VICODIN [Concomitant]
     Dosage: UNK
     Dates: start: 20080228
  11. TIGAN [Concomitant]
     Dosage: UNK
     Dates: start: 20080229
  12. DARVOCET [Concomitant]
     Dosage: UNK
     Dates: start: 20080229
  13. Z-PAK [Concomitant]
  14. NAPROSYN [Concomitant]
  15. MOXIFLOXACIN [Concomitant]

REACTIONS (1)
  - Pulmonary embolism [None]
